FAERS Safety Report 4738294-5 (Version None)
Quarter: 2005Q3

REPORT INFORMATION
  Report Type: 
  Country: None (occurrence: None)
  Receive Date: 20050809
  Receipt Date: 20050725
  Transmission Date: 20060218
  Serious: Yes (Disabling, Other)
  Sender: FDA-Public Use
  Company Number: 2005AC01121

PATIENT
  Age: 51 Year
  Sex: Female
  Weight: 58.9 kg

DRUGS (2)
  1. BUPIVACAINE [Suspect]
     Indication: ANAESTHESIA
     Route: 037
  2. DEXTROSE [Concomitant]
     Route: 037

REACTIONS (10)
  - ANAESTHETIC COMPLICATION [None]
  - ARACHNOIDITIS [None]
  - BRADYCARDIA [None]
  - DYSAESTHESIA [None]
  - FATIGUE [None]
  - HEADACHE [None]
  - IATROGENIC INJURY [None]
  - PAIN IN EXTREMITY [None]
  - SPASTIC PARALYSIS [None]
  - URINARY INCONTINENCE [None]
